FAERS Safety Report 5479340-3 (Version None)
Quarter: 2007Q4

REPORT INFORMATION
  Report Type: 
  Country: None (occurrence: None)
  Receive Date: 20071008
  Receipt Date: 20071004
  Transmission Date: 20080405
  Serious: Yes (Death)
  Sender: FDA-Public Use
  Company Number: JP-BAYER-200710529BYL

PATIENT
  Age: 33 Year
  Sex: Female

DRUGS (13)
  1. AVELOX [Suspect]
     Indication: BRONCHITIS
     Dosage: TOTAL DAILY DOSE: 400 MG  UNIT DOSE: 400 MG
     Route: 048
     Dates: start: 20070724, end: 20070729
  2. CLARITHROMYCIN [Concomitant]
     Dosage: TOTAL DAILY DOSE: 400 MG  UNIT DOSE: 200 MG
     Route: 048
     Dates: start: 20070720, end: 20070722
  3. METHISTA [Concomitant]
     Indication: BRONCHITIS
     Dosage: TOTAL DAILY DOSE: 1500 MG  UNIT DOSE: 250 MG
     Route: 048
     Dates: start: 20070728, end: 20070729
  4. MUCOSOLVAN [Concomitant]
     Indication: BRONCHITIS
     Dosage: TOTAL DAILY DOSE: 45 MG  UNIT DOSE: 15 MG
     Route: 048
     Dates: start: 20070720, end: 20070729
  5. SEKINARIN [Concomitant]
     Indication: BRONCHITIS
     Dosage: TOTAL DAILY DOSE: 2 MG  UNIT DOSE: 2 MG
     Route: 062
     Dates: start: 20070724, end: 20070729
  6. CHLOPHEDRIN S [Concomitant]
     Indication: BRONCHITIS
     Dosage: TOTAL DAILY DOSE: 6 ML  UNIT DOSE: 3 ML
     Route: 048
     Dates: start: 20070720, end: 20070729
  7. ROSEOL [Concomitant]
     Indication: HEADACHE
     Dosage: TOTAL DAILY DOSE: 60 MG  UNIT DOSE: 60 MG
     Route: 048
     Dates: start: 20070724, end: 20070729
  8. LYSOZYME HYDROCHLORIDE [Concomitant]
     Dosage: TOTAL DAILY DOSE: 270 MG  UNIT DOSE: 90 MG
     Route: 048
     Dates: start: 20070720
  9. SIMPLE SYRUP [Concomitant]
     Indication: BRONCHITIS
     Dosage: TOTAL DAILY DOSE: 9.0 ML  UNIT DOSE: 4.5 ML
     Route: 048
     Dates: start: 20070720, end: 20070729
  10. SEKIEL [Concomitant]
     Route: 058
     Dates: start: 20070720, end: 20070720
  11. SEKIEL [Concomitant]
     Route: 058
     Dates: start: 20070723, end: 20070723
  12. CLINDAMYCIN HCL [Concomitant]
     Route: 030
     Dates: start: 20070727, end: 20070727
  13. COFMESIN [Concomitant]
     Route: 030
     Dates: start: 20070728, end: 20070728

REACTIONS (1)
  - DEATH [None]
